FAERS Safety Report 5758015-7 (Version None)
Quarter: 2008Q2

REPORT INFORMATION
  Report Type: 
  Country: None (occurrence: None)
  Receive Date: 20080602
  Receipt Date: 20080602
  Transmission Date: 20081010
  Serious: Yes (Death)
  Sender: FDA-Public Use
  Company Number: None

PATIENT
  Sex: Male

DRUGS (15)
  1. REVLIMID [Suspect]
     Indication: MULTIPLE MYELOMA
     Dosage: 10MG DAILY 21D/28D PO
     Route: 048
  2. PAMIDRONATE DISODIUM [Concomitant]
  3. ALKERAN [Concomitant]
  4. TEMAZEPAM [Concomitant]
  5. DILTIAZEPAM [Concomitant]
  6. HALOPERIDOL [Concomitant]
  7. COMPAZINE [Concomitant]
  8. TYLENOL [Concomitant]
  9. PHENOBARBITAL TAB [Concomitant]
  10. ATIVAN [Concomitant]
  11. VICODIN [Concomitant]
  12. MORPHINE CONCENTRATE [Concomitant]
  13. BISACODYL [Concomitant]
  14. LACTULOSE [Concomitant]
  15. ALKERAN [Concomitant]

REACTIONS (2)
  - DISEASE PROGRESSION [None]
  - DRUG INEFFECTIVE [None]
